FAERS Safety Report 4396953-0 (Version None)
Quarter: 2004Q3

REPORT INFORMATION
  Report Type: 
  Country: None (occurrence: None)
  Receive Date: 20040708
  Receipt Date: 20040625
  Transmission Date: 20050211
  Serious: Yes (Other)
  Sender: FDA-Public Use
  Company Number: CZ-JNJFOC-20040607318

PATIENT
  Age: 56 Year
  Sex: Female

DRUGS (10)
  1. REMICADE [Suspect]
     Indication: CROHN'S DISEASE
     Dosage: 300 MG, INTRAVENOUS
     Route: 042
     Dates: start: 20040305, end: 20040305
  2. REMICADE [Suspect]
     Indication: CROHN'S DISEASE
     Dosage: 300 MG, INTRAVENOUS
     Route: 042
     Dates: start: 20040318, end: 20040318
  3. REMICADE [Suspect]
     Indication: CROHN'S DISEASE
     Dosage: 300 MG, INTRAVENOUS
     Route: 042
     Dates: start: 20040415
  4. PREDNISONE [Concomitant]
  5. IMURAN [Concomitant]
  6. ASACOL [Concomitant]
  7. SALAQZOPYRIN (SULFASALAZINE) [Concomitant]
  8. HELICID (OMEPRAZOLE) [Concomitant]
  9. VASOCARDIN (METOPROLOL TARTRATE) [Concomitant]
  10. DITROPAN [Concomitant]

REACTIONS (4)
  - ABSCESS [None]
  - SALMONELLOSIS [None]
  - THERAPY NON-RESPONDER [None]
  - THYROIDITIS [None]
